FAERS Safety Report 10197107 (Version 2)
Quarter: 2014Q2

REPORT INFORMATION
  Report Type: Spontaneous
  Country: RU (occurrence: RU)
  Receive Date: 20140527
  Receipt Date: 20140602
  Transmission Date: 20141212
  Serious: Yes (Death)
  Sender: FDA-Public Use
  Company Number: RU-B.I. PHARMACEUTICALS,INC./RIDGEFIELD-2014-BI-23092RZ

PATIENT
  Age: 80 Year
  Sex: Female
  Weight: 90 kg

DRUGS (6)
  1. PRADAXA [Suspect]
     Indication: ATRIAL FIBRILLATION
     Dosage: 220 MG
     Route: 048
     Dates: start: 20140513, end: 20140520
  2. CLEXANE [Concomitant]
     Indication: ISCHAEMIC STROKE
     Dosage: 0.8 UNK
     Route: 030
     Dates: start: 20140506, end: 20140512
  3. EGILOK [Concomitant]
     Route: 048
  4. VEROSHPIRON [Concomitant]
     Route: 048
  5. KALIUM AND MAGNESIUM [Concomitant]
     Route: 042
  6. MEXIPRIM [Concomitant]
     Route: 042

REACTIONS (2)
  - Haemorrhagic transformation stroke [Fatal]
  - Oesophageal varices haemorrhage [Fatal]
